FAERS Safety Report 6147894-X (Version None)
Quarter: 2009Q2

REPORT INFORMATION
  Report Type: 
  Country: None (occurrence: None)
  Receive Date: 20090408
  Receipt Date: 20090331
  Transmission Date: 20091009
  Serious: Yes (Disabling)
  Sender: FDA-Public Use
  Company Number: AU-BRISTOL-MYERS SQUIBB COMPANY-14573315

PATIENT
  Age: 62 Year
  Sex: Male

DRUGS (7)
  1. IRBESARTAN AND HYDROCHLOROTHIAZIDE [Suspect]
     Route: 048
  2. METFORMIN HCL [Suspect]
  3. PLAVIX [Suspect]
     Route: 048
     Dates: start: 20081001
  4. LIPITOR [Suspect]
     Route: 048
  5. ADALAT [Suspect]
  6. ATENOLOL [Suspect]
  7. ASPIRIN AND DIPYRIDAMOLE [Concomitant]

REACTIONS (2)
  - AGEUSIA [None]
  - RASH [None]
